FAERS Safety Report 21690774 (Version 3)
Quarter: 2022Q4

REPORT INFORMATION
  Report Type: Report from Study
  Country: US (occurrence: US)
  Receive Date: 20221207
  Receipt Date: 20221212
  Transmission Date: 20230112
  Serious: Yes (Death, Hospitalization, Other)
  Sender: FDA-Public Use
  Company Number: US-ABBVIE-4221156

PATIENT
  Age: 71 Year
  Sex: Female
  Weight: 65.77 kg

DRUGS (5)
  1. CARBIDOPA\LEVODOPA [Suspect]
     Active Substance: CARBIDOPA\LEVODOPA
     Indication: Parkinson^s disease
     Route: 050
     Dates: start: 20161007, end: 20221105
  2. CARBIDOPA\LEVODOPA [Suspect]
     Active Substance: CARBIDOPA\LEVODOPA
  3. ZOLOFT [Concomitant]
     Active Substance: SERTRALINE HYDROCHLORIDE
     Indication: Depression
  4. MIRTAZAPINE [Concomitant]
     Active Substance: MIRTAZAPINE
     Indication: Sleep disorder therapy
  5. NEUPRO [Concomitant]
     Active Substance: ROTIGOTINE
     Indication: Dopaminergic drug therapy

REACTIONS (17)
  - Renal failure [Fatal]
  - Asthenia [Recovered/Resolved]
  - Loss of consciousness [Unknown]
  - Device dislocation [Not Recovered/Not Resolved]
  - Asthenia [Fatal]
  - COVID-19 [Recovered/Resolved]
  - Urinary tract infection [Recovered/Resolved]
  - Renal injury [Fatal]
  - Vitamin D decreased [Recovered/Resolved]
  - Urinary tract infection [Recovered/Resolved]
  - Gastrointestinal obstruction [Unknown]
  - Medical device battery replacement [Unknown]
  - Blood creatinine abnormal [Unknown]
  - Hypersensitivity [Unknown]
  - Hospice care [Unknown]
  - Device occlusion [Not Recovered/Not Resolved]
  - Blood albumin abnormal [Unknown]

NARRATIVE: CASE EVENT DATE: 20191001
